FAERS Safety Report 6585678-9 (Version None)
Quarter: 2010Q1

REPORT INFORMATION
  Report Type: 
  Country: None (occurrence: None)
  Receive Date: 20100217
  Receipt Date: 20100208
  Transmission Date: 20100710
  Serious: Yes (Hospitalization)
  Sender: FDA-Public Use
  Company Number: US-ELI_LILLY_AND_COMPANY-US201002002221

PATIENT
  Sex: Male

DRUGS (11)
  1. HUMALOG [Suspect]
     Indication: DIABETES MELLITUS
     Dosage: 15 U, 3/D
  2. HUMALOG [Suspect]
     Dosage: UNK, AS NEEDED
  3. HUMALOG [Suspect]
     Dosage: 8 U, OTHER
  4. HUMALOG [Suspect]
     Dosage: 15 U, 3/D
  5. COREG [Concomitant]
  6. BETAPACE [Concomitant]
  7. SYNTHROID [Concomitant]
  8. AMARYL [Concomitant]
  9. NEXIUM [Concomitant]
  10. NEUROTIN /00949202/ [Concomitant]
  11. PROCRIT [Concomitant]

REACTIONS (3)
  - BLOOD GLUCOSE INCREASED [None]
  - INCORRECT DOSE ADMINISTERED [None]
  - SINUS DISORDER [None]
